FAERS Safety Report 20224931 (Version 1)
Quarter: 2021Q4

REPORT INFORMATION
  Report Type: Spontaneous
  Country: US (occurrence: US)
  Receive Date: 20211223
  Receipt Date: 20211223
  Transmission Date: 20220303
  Serious: Yes (Other)
  Sender: FDA-Public Use
  Company Number: US-SANOFI-00902907

PATIENT
  Age: 63 Year
  Sex: Female

DRUGS (1)
  1. LANTUS SOLOSTAR [Suspect]
     Active Substance: INSULIN GLARGINE
     Indication: Type 1 diabetes mellitus
     Dosage: 36 IU, AT BEDTIME
     Route: 065

REACTIONS (5)
  - Cerebrovascular accident [Unknown]
  - COVID-19 [Unknown]
  - Speech disorder [Unknown]
  - Localised infection [Unknown]
  - Leg amputation [Unknown]

NARRATIVE: CASE EVENT DATE: 20190101
